FAERS Safety Report 20523813 (Version 1)
Quarter: 2022Q1

REPORT INFORMATION
  Report Type: Spontaneous
  Country: US (occurrence: US)
  Receive Date: 20220228
  Receipt Date: 20220228
  Transmission Date: 20220423
  Serious: No
  Sender: FDA-Public Use
  Company Number: US-IGSA-BIG0016471

PATIENT
  Age: 67 Year
  Sex: Female
  Weight: 57 kg

DRUGS (29)
  1. PROLASTIN-C LIQUID [Suspect]
     Active Substance: .ALPHA.1-PROTEINASE INHIBITOR HUMAN
     Indication: Alpha-1 antitrypsin deficiency
     Dosage: 3420 MILLIGRAM, Q.WK.
     Route: 042
     Dates: start: 20211023
  2. PROLASTIN-C LIQUID [Suspect]
     Active Substance: .ALPHA.1-PROTEINASE INHIBITOR HUMAN
     Dosage: 3420 MILLIGRAM, Q.WK.
     Route: 042
     Dates: start: 20180622
  3. ACETAMINOPHEN [Concomitant]
     Active Substance: ACETAMINOPHEN
  4. ACYCLOVIR [Concomitant]
     Active Substance: ACYCLOVIR
  5. ASPIRIN [Concomitant]
     Active Substance: ASPIRIN
  6. AZITHROMYCIN [Concomitant]
     Active Substance: AZITHROMYCIN
  7. BIOTIN [Concomitant]
     Active Substance: BIOTIN
  8. CALCIUM CARBONATE [Concomitant]
     Active Substance: CALCIUM CARBONATE
  9. VITAMIN D NOS [Concomitant]
     Active Substance: VITAMIN D NOS
  10. CLONAZEPAM [Concomitant]
     Active Substance: CLONAZEPAM
  11. NEORAL [Concomitant]
     Active Substance: CYCLOSPORINE
  12. CARDIZEM CD [Concomitant]
     Active Substance: DILTIAZEM HYDROCHLORIDE
  13. DOCUSATE SODIUM [Concomitant]
     Active Substance: DOCUSATE SODIUM
  14. FERROUS SULFATE [Concomitant]
     Active Substance: FERROUS SULFATE
  15. FUROSEMIDE [Concomitant]
     Active Substance: FUROSEMIDE
  16. NORCO [Concomitant]
     Active Substance: ACETAMINOPHEN\HYDROCODONE BITARTRATE
  17. LORATADINE [Concomitant]
     Active Substance: LORATADINE
  18. MAGNESIUM OXIDE [Concomitant]
     Active Substance: MAGNESIUM OXIDE
  19. MULTIVITAL [ASTRAGALUS MONGHOLICUS ROOT;AVENA SATIVA SEED;CENTELLA ASI [Concomitant]
  20. ONDANSETRON HCL [Concomitant]
     Active Substance: ONDANSETRON HYDROCHLORIDE
  21. PRAVASTATIN SODIUM [Concomitant]
     Active Substance: PRAVASTATIN SODIUM
  22. SENOKOT [Concomitant]
     Active Substance: SENNOSIDES
  23. BACTRIM DS [Concomitant]
     Active Substance: SULFAMETHOXAZOLE\TRIMETHOPRIM
  24. TEMAZEPAM [Concomitant]
     Active Substance: TEMAZEPAM
  25. RENOVA [TRETINOIN] [Concomitant]
  26. ACTIGALL [Concomitant]
     Active Substance: URSODIOL
  27. PREDNISONE [Concomitant]
     Active Substance: PREDNISONE
  28. CRESEMBA [Concomitant]
     Active Substance: ISAVUCONAZONIUM SULFATE
  29. TOBRAMYCIN [Concomitant]
     Active Substance: TOBRAMYCIN

REACTIONS (1)
  - Rash erythematous [Not Recovered/Not Resolved]

NARRATIVE: CASE EVENT DATE: 20211023
